FAERS Safety Report 16735599 (Version 1)
Quarter: 2019Q3

REPORT INFORMATION
  Report Type: Spontaneous
  Country: US (occurrence: US)
  Receive Date: 20190823
  Receipt Date: 20190823
  Transmission Date: 20191005
  Serious: Yes (Other)
  Sender: FDA-Public Use
  Company Number: None

PATIENT
  Age: 37 Year
  Sex: Female
  Weight: 52.65 kg

DRUGS (1)
  1. FERAHEME [Suspect]
     Active Substance: FERUMOXYTOL NON-STOICHIOMETRIC MAGNETITE
     Indication: IRON DEFICIENCY ANAEMIA
     Dosage: ?          OTHER FREQUENCY:30 MINUTES;?
     Route: 041

REACTIONS (5)
  - Sneezing [None]
  - Oral pruritus [None]
  - Infusion related reaction [None]
  - Eye pruritus [None]
  - Flushing [None]

NARRATIVE: CASE EVENT DATE: 20190821
